FAERS Safety Report 15609603 (Version 1)
Quarter: 2018Q4

REPORT INFORMATION
  Report Type: Report from Study
  Country: None (occurrence: BR)
  Receive Date: 20181113
  Receipt Date: 20181113
  Transmission Date: 20190205
  Serious: Yes (Hospitalization, Disabling)
  Sender: FDA-Public Use
  Company Number: BR-ABBVIE-18K-020-2549977-00

PATIENT
  Age: 56 Year
  Sex: Female
  Weight: 54 kg

DRUGS (2)
  1. HUMIRA [Suspect]
     Active Substance: ADALIMUMAB
     Indication: RHEUMATOID ARTHRITIS
     Route: 058
     Dates: start: 20120304
  2. HUMIRA [Suspect]
     Active Substance: ADALIMUMAB
     Route: 058
     Dates: end: 20180923

REACTIONS (8)
  - Influenza [Recovered/Resolved]
  - Gait inability [Recovering/Resolving]
  - Arrhythmia [Recovering/Resolving]
  - Suture related complication [Not Recovered/Not Resolved]
  - Hypertension [Recovering/Resolving]
  - Tendon rupture [Recovered/Resolved]
  - Hyperkeratosis [Recovered/Resolved]
  - Arthritis [Unknown]

NARRATIVE: CASE EVENT DATE: 2014
